FAERS Safety Report 5501448-4 (Version None)
Quarter: 2007Q4

REPORT INFORMATION
  Report Type: 
  Country: None (occurrence: None)
  Receive Date: 20071030
  Receipt Date: 20071019
  Transmission Date: 20080405
  Serious: Yes (Other)
  Sender: FDA-Public Use
  Company Number: PHHO2007ES17333

PATIENT
  Age: 26 Year
  Sex: Male
  Weight: 86 kg

DRUGS (2)
  1. LMF237 VS VILDAGLIPTIN VS METFORMIN [Suspect]
     Indication: TYPE 2 DIABETES MELLITUS
     Dosage: CODE NOT BROKEN
     Route: 048
     Dates: start: 20070615
  2. TESTOSTERONE [Concomitant]
     Indication: HYPOGONADISM

REACTIONS (3)
  - ABDOMINAL PAIN [None]
  - COLONIC POLYP [None]
  - RECTAL HAEMORRHAGE [None]
